FAERS Safety Report 5099765-8 (Version None)
Quarter: 2006Q3

REPORT INFORMATION
  Report Type: 
  Country: None (occurrence: None)
  Receive Date: 20060908
  Receipt Date: 20060725
  Transmission Date: 20061208
  Serious: Yes (Other)
  Sender: FDA-Public Use
  Company Number: US-NOVOPROD-255492

PATIENT
  Age: 41 Year
  Sex: Male

DRUGS (2)
  1. NOVOLOG [Suspect]
     Indication: DIABETES MELLITUS INSULIN-DEPENDENT
     Route: 058
     Dates: start: 20010101
  2. LANTUS [Concomitant]
     Indication: DIABETES MELLITUS INSULIN-DEPENDENT
     Dosage: UNKNOWN
     Route: 058

REACTIONS (5)
  - BLOOD GLUCOSE INCREASED [None]
  - DEVICE MALFUNCTION [None]
  - HYPOAESTHESIA FACIAL [None]
  - HYPOGLYCAEMIC SEIZURE [None]
  - PHARMACEUTICAL PRODUCT COMPLAINT [None]
